FAERS Safety Report 4677058-8 (Version None)
Quarter: 2005Q2

REPORT INFORMATION
  Report Type: 
  Country: None (occurrence: None)
  Receive Date: 20050525
  Receipt Date: 20050214
  Transmission Date: 20051028
  Serious: No
  Sender: FDA-Public Use
  Company Number: SU-2005-003200

PATIENT
  Sex: Male

DRUGS (1)
  1. BENICAR [Suspect]
     Dosage: 20 MG QD PO
     Route: 048
     Dates: start: 20050211, end: 20050214

REACTIONS (2)
  - EYE SWELLING [None]
  - OCULAR HYPERAEMIA [None]
